FAERS Safety Report 26132638 (Version 1)
Quarter: 2025Q4

REPORT INFORMATION
  Report Type: Report from Study
  Country: US (occurrence: US)
  Receive Date: 20251208
  Receipt Date: 20251208
  Transmission Date: 20260119
  Serious: Yes (Hospitalization, Other)
  Sender: JOHNSON AND JOHNSON
  Company Number: US-ABBVIE-6463660

PATIENT
  Age: 77 Year
  Sex: Female
  Weight: 91 kg

DRUGS (9)
  1. IMBRUVICA [Suspect]
     Active Substance: IBRUTINIB
     Indication: Colon cancer
     Dosage: FORM STRENGTH: 420 MILLIGRAM?DISCONTINUED IN 2025
     Route: 048
     Dates: start: 202509
  2. IMBRUVICA [Suspect]
     Active Substance: IBRUTINIB
     Indication: Chronic lymphocytic leukaemia
     Dosage: FORM STRENGTH: 420 MILLIGRAM
     Route: 048
     Dates: start: 202401, end: 20250607
  3. IMBRUVICA [Suspect]
     Active Substance: IBRUTINIB
     Indication: Osteoporosis
     Dosage: FORM STRENGTH: 420 MILLIGRAM
     Route: 048
     Dates: start: 202101, end: 202206
  4. IMBRUVICA [Suspect]
     Active Substance: IBRUTINIB
     Route: 048
  5. IMBRUVICA [Suspect]
     Active Substance: IBRUTINIB
     Dosage: STARTED IN 2025
     Route: 048
     Dates: end: 20251126
  6. XARELTO [Suspect]
     Active Substance: RIVAROXABAN
     Indication: Product used for unknown indication
     Route: 048
  7. LOSARTAN [Concomitant]
     Active Substance: LOSARTAN
     Indication: Blood pressure measurement
     Dosage: 25 MILLIGRAM
  8. LOSARTAN [Concomitant]
     Active Substance: LOSARTAN
     Dosage: 25 MILLIGRAM
  9. PREGABALIN [Concomitant]
     Active Substance: PREGABALIN
     Indication: Neuralgia
     Dosage: 200 MILLIGRAM

REACTIONS (18)
  - Atrial fibrillation [Not Recovered/Not Resolved]
  - Sciatica [Not Recovered/Not Resolved]
  - Femur fracture [Recovered/Resolved]
  - Gait inability [Recovered/Resolved]
  - Pyrexia [Recovered/Resolved]
  - Haematoma [Not Recovered/Not Resolved]
  - Osteoporosis [Not Recovered/Not Resolved]
  - Haematoma [Recovered/Resolved]
  - Nerve injury [Not Recovered/Not Resolved]
  - Peroneal nerve palsy [Not Recovered/Not Resolved]
  - Hypoaesthesia [Not Recovered/Not Resolved]
  - Fall [Recovered/Resolved]
  - Cough [Not Recovered/Not Resolved]
  - White blood cell count increased [Not Recovered/Not Resolved]
  - Haematoma [Recovered/Resolved]
  - Increased tendency to bruise [Not Recovered/Not Resolved]
  - Muscular weakness [Not Recovered/Not Resolved]
  - Urinary tract infection [Unknown]

NARRATIVE: CASE EVENT DATE: 20210101
